FAERS Safety Report 20101430 (Version 1)
Quarter: 2021Q4

REPORT INFORMATION
  Report Type: Spontaneous
  Country: US (occurrence: None)
  Receive Date: 20211122
  Receipt Date: 20211122
  Transmission Date: 20220303
  Serious: No
  Sender: FDA-Public Use
  Company Number: None

PATIENT
  Age: 23 Year
  Sex: Female
  Weight: 76.5 kg

DRUGS (5)
  1. AVEENO CLEAR COMPLEXION DAILY CLEANSING PADS [Suspect]
     Active Substance: SALICYLIC ACID
     Indication: Acne
     Dosage: OTHER QUANTITY : 1 PAD;?FREQUENCY : DAILY;?
     Route: 061
  2. xulane birth control [Concomitant]
  3. VITAMIN B COMPLEX [Concomitant]
     Active Substance: CYANOCOBALAMIN\DEXPANTHENOL\NIACINAMIDE\PYRIDOXINE HYDROCHLORIDE\RIBOFLAVIN 5^-PHOSPHATE SODIUM\THIA
  4. VITAMIN D3 [Concomitant]
     Active Substance: CHOLECALCIFEROL
  5. ALBUTEROL [Concomitant]
     Active Substance: ALBUTEROL

REACTIONS (4)
  - Dry skin [None]
  - Swelling face [None]
  - Eye swelling [None]
  - Skin texture abnormal [None]

NARRATIVE: CASE EVENT DATE: 20211121
